FAERS Safety Report 16696172 (Version 1)
Quarter: 2019Q3

REPORT INFORMATION
  Report Type: Spontaneous
  Country: IT (occurrence: IT)
  Receive Date: 20190813
  Receipt Date: 20190813
  Transmission Date: 20191004
  Serious: Yes (Other)
  Sender: FDA-Public Use
  Company Number: IT-ABBVIE-19K-083-2885769-00

PATIENT
  Age: 48 Year
  Sex: Male

DRUGS (1)
  1. MAVIRET [Suspect]
     Active Substance: GLECAPREVIR\PIBRENTASVIR
     Indication: HEPATITIS C
     Route: 048
     Dates: start: 20180505, end: 20180701

REACTIONS (2)
  - Therapy non-responder [Unknown]
  - Hepatitis C RNA increased [Unknown]

NARRATIVE: CASE EVENT DATE: 20190201
